APPROVED DRUG PRODUCT: PHENTERMINE HYDROCHLORIDE
Active Ingredient: PHENTERMINE HYDROCHLORIDE
Strength: 37.5MG
Dosage Form/Route: TABLET;ORAL
Application: A090470 | Product #001
Applicant: BARR LABORATORIES INC
Approved: Aug 31, 2009 | RLD: No | RS: No | Type: DISCN